FAERS Safety Report 11613515 (Version 2)
Quarter: 2015Q4

REPORT INFORMATION
  Report Type: Spontaneous
  Country: US (occurrence: US)
  Receive Date: 20151008
  Receipt Date: 20151013
  Transmission Date: 20160304
  Serious: No
  Sender: FDA-Public Use
  Company Number: US-ACTELION PHARMACEUTICALS US, INC.-A-US2015-125192

PATIENT
  Age: 83 Year
  Sex: Female

DRUGS (11)
  1. VITAMIN B12 [Concomitant]
     Active Substance: CYANOCOBALAMIN
  2. METFORMIN [Concomitant]
     Active Substance: METFORMIN HYDROCHLORIDE
     Indication: ESSENTIAL HYPERTENSION
  3. MAGNESIUM [Concomitant]
     Active Substance: MAGNESIUM
  4. ALFALFA [Concomitant]
     Active Substance: ALFALFA
  5. MVI [Concomitant]
     Active Substance: VITAMINS
  6. LEVOXYL [Concomitant]
     Active Substance: LEVOTHYROXINE SODIUM
  7. LEVEMIR [Concomitant]
     Active Substance: INSULIN DETEMIR
  8. CALCIUM [Concomitant]
     Active Substance: CALCIUM
  9. VALCHLOR [Suspect]
     Active Substance: MECHLORETHAMINE
     Indication: MYCOSIS FUNGOIDES
     Dosage: 1 - 2 XS /WEEKLY
     Route: 061
     Dates: start: 20140826
  10. LOSARTAN. [Concomitant]
     Active Substance: LOSARTAN
  11. PRAVASTATIN [Concomitant]
     Active Substance: PRAVASTATIN\PRAVASTATIN SODIUM

REACTIONS (4)
  - Nerve compression [Not Recovered/Not Resolved]
  - Arthralgia [Not Recovered/Not Resolved]
  - Back pain [Unknown]
  - Intervertebral disc protrusion [Not Recovered/Not Resolved]
